FAERS Safety Report 24247362 (Version 1)
Quarter: 2024Q3

REPORT INFORMATION
  Report Type: Spontaneous
  Country: US (occurrence: US)
  Receive Date: 20240826
  Receipt Date: 20240826
  Transmission Date: 20241017
  Serious: No
  Sender: STRIDES
  Company Number: US-STRIDES ARCOLAB LIMITED-2024SP007711

PATIENT
  Age: 54 Year
  Sex: Female

DRUGS (9)
  1. CYPROHEPTADINE [Suspect]
     Active Substance: CYPROHEPTADINE\CYPROHEPTADINE HYDROCHLORIDE
     Indication: Serotonin syndrome
     Dosage: UNK
     Route: 065
  2. FLUOXETINE [Concomitant]
     Active Substance: FLUOXETINE HYDROCHLORIDE
     Indication: Product used for unknown indication
     Dosage: UNK
     Route: 065
  3. IFOSFAMIDE [Concomitant]
     Active Substance: IFOSFAMIDE
     Indication: Leiomyosarcoma metastatic
     Dosage: 1500 MILLIGRAM/SQ. METER
     Route: 065
  4. METHYLENE BLUE [Concomitant]
     Active Substance: METHYLENE BLUE
     Indication: Neurotoxicity
     Dosage: 50 MILLIGRAM; 0.66 MG/KG, 4 HOURS
     Route: 042
  5. METHYLENE BLUE [Concomitant]
     Active Substance: METHYLENE BLUE
     Dosage: UNK; 4TH DOSE OF METHYLTHIONINIUM-CHLORIDE
     Route: 065
  6. BUPROPION [Concomitant]
     Active Substance: BUPROPION
     Indication: Product used for unknown indication
     Dosage: UNK
     Route: 065
  7. MESNA [Concomitant]
     Active Substance: MESNA
     Indication: Leiomyosarcoma metastatic
     Dosage: UNK
     Route: 065
  8. DOXORUBICIN [Concomitant]
     Active Substance: DOXORUBICIN
     Indication: Leiomyosarcoma metastatic
     Dosage: UNK
     Route: 065
  9. THIAMINE [Concomitant]
     Active Substance: THIAMINE
     Indication: Neurotoxicity
     Dosage: UNK
     Route: 065

REACTIONS (1)
  - Off label use [Unknown]
